FAERS Safety Report 9279363 (Version 1)
Quarter: 2013Q2

REPORT INFORMATION
  Report Type: Spontaneous
  Country: BR (occurrence: BR)
  Receive Date: 20130508
  Receipt Date: 20130508
  Transmission Date: 20140414
  Serious: Yes (Hospitalization)
  Sender: FDA-Public Use
  Company Number: BR-PFIZER INC-2013142325

PATIENT
  Age: 70 Year
  Sex: Male

DRUGS (1)
  1. FRONTAL [Suspect]
     Indication: INSOMNIA
     Dosage: ONE (UNSPECIFIED FORMULATION), DAILY
     Route: 048
     Dates: start: 20080506

REACTIONS (2)
  - Arterial occlusive disease [Unknown]
  - Off label use [Not Recovered/Not Resolved]
